FAERS Safety Report 4971578-4 (Version None)
Quarter: 2006Q2

REPORT INFORMATION
  Report Type: 
  Country: None (occurrence: None)
  Receive Date: 20060413
  Receipt Date: 20060404
  Transmission Date: 20061013
  Serious: Yes (Hospitalization)
  Sender: FDA-Public Use
  Company Number: 2006UW05940

PATIENT
  Age: 81 Year
  Sex: Male

DRUGS (10)
  1. SEROQUEL [Suspect]
     Indication: PARKINSON'S DISEASE
     Route: 048
  2. SEROQUEL [Suspect]
     Indication: DEPRESSION
     Route: 048
  3. SEROQUEL [Suspect]
     Indication: DEMENTIA ALZHEIMER'S TYPE
     Route: 048
  4. ZOLOFT [Concomitant]
  5. ARICEPT [Concomitant]
  6. THREE DIABETES PILLS [Concomitant]
     Indication: DIABETES MELLITUS
  7. STARLIX [Concomitant]
  8. TWO HEART PILLS [Concomitant]
     Indication: CARDIAC DISORDER
  9. CARBIDOPA [Concomitant]
  10. LEVODOPA [Concomitant]

REACTIONS (6)
  - BLOOD GLUCOSE ABNORMAL [None]
  - BLOOD GLUCOSE INCREASED [None]
  - DIZZINESS [None]
  - FALL [None]
  - ROAD TRAFFIC ACCIDENT [None]
  - WEIGHT INCREASED [None]
